FAERS Safety Report 12471018 (Version 2)
Quarter: 2016Q2

REPORT INFORMATION
  Report Type: Spontaneous
  Country: US (occurrence: US)
  Receive Date: 20160616
  Receipt Date: 20160616
  Transmission Date: 20160815
  Serious: Yes (Other)
  Sender: FDA-Public Use
  Company Number: US-ACTAVIS-2016-12713

PATIENT
  Age: 94 Year
  Sex: Male

DRUGS (6)
  1. ABIRATERONE [Concomitant]
     Active Substance: ABIRATERONE
     Indication: HORMONE-REFRACTORY PROSTATE CANCER
     Dosage: UNK
     Route: 065
     Dates: start: 201501
  2. DUTASTERIDE (UNKNOWN) [Suspect]
     Active Substance: DUTASTERIDE
     Indication: HORMONE-REFRACTORY PROSTATE CANCER
     Dosage: UNK
     Route: 065
     Dates: start: 2009
  3. DEGARELIX [Suspect]
     Active Substance: DEGARELIX
     Indication: HORMONE-REFRACTORY PROSTATE CANCER
     Dosage: UNK
     Route: 065
     Dates: start: 201504
  4. PROVENGE [Concomitant]
     Active Substance: SIPULEUCEL-T
     Indication: HORMONE-REFRACTORY PROSTATE CANCER
     Dosage: UNK
     Route: 065
     Dates: start: 201201
  5. BICALUTAMIDE (ATLLC) [Suspect]
     Active Substance: BICALUTAMIDE
     Indication: HORMONE-REFRACTORY PROSTATE CANCER
     Dosage: UNK
     Route: 065
     Dates: start: 2009
  6. DEGARELIX [Suspect]
     Active Substance: DEGARELIX
     Dosage: UNK
     Route: 065
     Dates: start: 200909, end: 201401

REACTIONS (3)
  - Hyperadrenalism [Unknown]
  - Pneumonia [None]
  - Prostatic specific antigen increased [None]
